FAERS Safety Report 15295155 (Version 4)
Quarter: 2018Q3

REPORT INFORMATION
  Report Type: Spontaneous
  Country: US (occurrence: US)
  Receive Date: 20180820
  Receipt Date: 20180827
  Transmission Date: 20181010
  Serious: Yes (Other)
  Sender: FDA-Public Use
  Company Number: US-PFIZER INC-2018330735

PATIENT
  Age: 80 Year
  Sex: Female
  Weight: 66 kg

DRUGS (1)
  1. DOFETILIDE. [Suspect]
     Active Substance: DOFETILIDE
     Indication: ATRIAL FIBRILLATION
     Dosage: 250 (UNITS NOT PROVIDED), 2X/DAY (2 CAPSULES BY MOUTH 2 TIMES DAILY)
     Route: 048
     Dates: start: 20180715

REACTIONS (7)
  - Myalgia [Not Recovered/Not Resolved]
  - Drug dispensing error [Unknown]
  - Muscular weakness [Not Recovered/Not Resolved]
  - Fatigue [Unknown]
  - Cardiac failure congestive [Unknown]
  - Paraesthesia [Not Recovered/Not Resolved]
  - Tremor [Unknown]

NARRATIVE: CASE EVENT DATE: 20180718
